FAERS Safety Report 7204929-0 (Version None)
Quarter: 2010Q4

REPORT INFORMATION
  Report Type: 
  Country: None (occurrence: None)
  Receive Date: 20101217
  Receipt Date: 20101208
  Transmission Date: 20110411
  Serious: Yes (Death, Hospitalization)
  Sender: FDA-Public Use
  Company Number: 2009AC000354

PATIENT
  Age: 85 Year
  Sex: Male

DRUGS (34)
  1. DIGOXIN [Suspect]
     Dosage: 0.125 MG;QD;PO
     Route: 048
  2. DIGOXIN [Suspect]
     Dosage: 0.25 MG
     Dates: start: 20040101
  3. DIGOXIN [Suspect]
     Dosage: 0.25 MG;QD;PO
     Route: 048
     Dates: start: 19950101
  4. COUMADIN [Concomitant]
  5. VITAMIN K TAB [Concomitant]
  6. BETAPACE [Concomitant]
  7. LASIX [Concomitant]
  8. CARDIZEM [Concomitant]
  9. DETROL [Concomitant]
  10. FLOMAX [Concomitant]
  11. ASPIRIN [Concomitant]
  12. CARTIA XT [Concomitant]
  13. ALTACE [Concomitant]
  14. CIPRO [Concomitant]
  15. POTASSIUM [Concomitant]
  16. FUROSEMIDE [Concomitant]
  17. DILTIAZEM [Concomitant]
  18. CIPROFLAXACIN [Concomitant]
  19. LORAZEPAM [Concomitant]
  20. TEMAZEPAM [Concomitant]
  21. POTASSIUM CHLORIDE [Concomitant]
  22. OMEPRAZOLE [Concomitant]
  23. NITROSTAT [Concomitant]
  24. KETOCONAZOLE [Concomitant]
  25. NIZORAL [Concomitant]
  26. WARFARIN SODIUM [Concomitant]
  27. ASPIRIN [Concomitant]
  28. LISINOPRIL [Concomitant]
  29. ASPIRIN [Concomitant]
  30. SOTALOL [Concomitant]
  31. MACROBID [Concomitant]
  32. PLAVIX [Concomitant]
  33. LORTAB [Concomitant]
  34. CELEBREX [Concomitant]

REACTIONS (28)
  - ACUTE MYOCARDIAL INFARCTION [None]
  - ANXIETY [None]
  - AORTIC VALVE SCLEROSIS [None]
  - ARRHYTHMIA [None]
  - ATRIAL FIBRILLATION [None]
  - BENIGN PROSTATIC HYPERPLASIA [None]
  - BLOOD CREATININE INCREASED [None]
  - BLOOD GLUCOSE INCREASED [None]
  - BLOOD UREA INCREASED [None]
  - CARDIAC FAILURE ACUTE [None]
  - COAGULATION TIME PROLONGED [None]
  - DECREASED APPETITE [None]
  - DIZZINESS [None]
  - DYSURIA [None]
  - EAR DISCOMFORT [None]
  - ECONOMIC PROBLEM [None]
  - HAEMATURIA [None]
  - INTERNATIONAL NORMALISED RATIO INCREASED [None]
  - MULTIPLE INJURIES [None]
  - NAUSEA [None]
  - OVERDOSE [None]
  - SICK SINUS SYNDROME [None]
  - SURGERY [None]
  - TRICUSPID VALVE INCOMPETENCE [None]
  - URINARY RETENTION [None]
  - URINARY TRACT INFECTION [None]
  - VENTRICULAR EXTRASYSTOLES [None]
  - WEIGHT DECREASED [None]
